FAERS Safety Report 6109538-2 (Version None)
Quarter: 2009Q1

REPORT INFORMATION
  Report Type: 
  Country: None (occurrence: None)
  Receive Date: 20090306
  Receipt Date: 20090306
  Transmission Date: 20090719
  Serious: No
  Sender: FDA-Public Use
  Company Number: None

PATIENT
  Age: 50 Year
  Sex: Female
  Weight: 72.5755 kg

DRUGS (1)
  1. TAPAZOLE [Suspect]
     Indication: THYROID DISORDER
     Dosage: 1 TABLETS ONCE EVERY 12 HOUR CONTINUEING
     Dates: start: 20081002, end: 20090305

REACTIONS (6)
  - ACTIVITIES OF DAILY LIVING IMPAIRED [None]
  - LIGAMENT RUPTURE [None]
  - MOVEMENT DISORDER [None]
  - NEUROPATHY PERIPHERAL [None]
  - PAIN [None]
  - TENDON RUPTURE [None]
